FAERS Safety Report 16999956 (Version 7)
Quarter: 2020Q3

REPORT INFORMATION
  Report Type: Report from Study
  Country: JP (occurrence: JP)
  Receive Date: 20191106
  Receipt Date: 20200828
  Transmission Date: 20201102
  Serious: Yes (Death)
  Sender: FDA-Public Use
  Company Number: JP-KYOWAKIRIN-2019AKK017453

PATIENT

DRUGS (3)
  1. POTELIGEO [Suspect]
     Active Substance: MOGAMULIZUMAB-KPKC
     Indication: ADULT T-CELL LYMPHOMA/LEUKAEMIA
     Dosage: 70 MG
     Route: 041
     Dates: start: 20170919, end: 20170919
  2. METHYLPREDNISOLONE. [Concomitant]
     Active Substance: METHYLPREDNISOLONE
     Indication: LIVER DISORDER
     Dosage: 120 MG, QD, IN DECREASING DOSES
     Route: 041
     Dates: start: 20180111
  3. METHYLPREDNISOLONE. [Concomitant]
     Active Substance: METHYLPREDNISOLONE
     Indication: FLUID RETENTION

REACTIONS (5)
  - Rash [Recovered/Resolved]
  - Liver disorder [Not Recovered/Not Resolved]
  - Cytomegalovirus enterocolitis [Fatal]
  - Fluid retention [Not Recovered/Not Resolved]
  - Graft versus host disease in gastrointestinal tract [Fatal]

NARRATIVE: CASE EVENT DATE: 20170919
